FAERS Safety Report 8776884 (Version 2)
Quarter: 2012Q4

REPORT INFORMATION
  Report Type: Report from Study
  Country: CA (occurrence: CA)
  Receive Date: 20120911
  Receipt Date: 20120925
  Transmission Date: 20130627
  Serious: Yes (Hospitalization)
  Sender: FDA-Public Use
  Company Number: CA-JNJFOC-20120901852

PATIENT
  Sex: Male

DRUGS (7)
  1. STELARA [Suspect]
     Indication: PSORIASIS
     Route: 058
     Dates: start: 20060221
  2. LORAZEPAM [Concomitant]
     Route: 048
  3. ADALAT [Concomitant]
  4. LIPITOR [Concomitant]
  5. GLIPIZIDE [Concomitant]
  6. BUDESONIDE [Concomitant]
  7. COVERSYL [Concomitant]

REACTIONS (1)
  - Colon cancer [Recovered/Resolved]
